FAERS Safety Report 4295243-4 (Version None)
Quarter: 2004Q1

REPORT INFORMATION
  Report Type: 
  Country: None (occurrence: None)
  Receive Date: 20040216
  Receipt Date: 20030425
  Transmission Date: 20041129
  Serious: Yes (Other)
  Sender: FDA-Public Use
  Company Number: US-GLAXOSMITHKLINE-A0406281A

PATIENT
  Age: 42 Year
  Sex: Female

DRUGS (4)
  1. LAMICTAL [Suspect]
     Indication: BIPOLAR DISORDER
     Dosage: 400MG PER DAY
     Route: 048
  2. SYNTHROID [Concomitant]
  3. LITHIUM CARBONATE [Concomitant]
  4. KLONOPIN [Concomitant]

REACTIONS (5)
  - BREAST ABSCESS [None]
  - SUBCUTANEOUS ABSCESS [None]
  - TOOTH ABSCESS [None]
  - TOOTH DISORDER [None]
  - VAGINAL ABSCESS [None]
